FAERS Safety Report 21515881 (Version 2)
Quarter: 2022Q4

REPORT INFORMATION
  Report Type: Spontaneous
  Country: US (occurrence: US)
  Receive Date: 20221027
  Receipt Date: 20221028
  Transmission Date: 20230113
  Serious: Yes (Other)
  Sender: FDA-Public Use
  Company Number: US-PFIZER INC-PV202200082558

PATIENT
  Age: 72 Year
  Sex: Female

DRUGS (12)
  1. ESTRADIOL [Suspect]
     Active Substance: ESTRADIOL
     Indication: Atrophic vulvovaginitis
     Dosage: UNK (0.0375 MILLIGRAM)
     Route: 062
  2. ESTRADIOL [Suspect]
     Active Substance: ESTRADIOL
     Indication: Sexual dysfunction
     Dosage: UNK (0.05 MILLIGRAM)
  3. COMBIPATCH [Suspect]
     Active Substance: ESTRADIOL\NORETHINDRONE ACETATE
     Indication: Atrophic vulvovaginitis
     Dosage: UNK (0.05/0.14 MILLIGRAM)
     Route: 062
     Dates: start: 2020, end: 2020
  4. COMBIPATCH [Suspect]
     Active Substance: ESTRADIOL\NORETHINDRONE ACETATE
     Indication: Sexual dysfunction
  5. DIETARY SUPPLEMENT [Suspect]
     Active Substance: DIETARY SUPPLEMENT
     Indication: Atrophic vulvovaginitis
     Dosage: UNK
     Route: 062
  6. DIETARY SUPPLEMENT [Suspect]
     Active Substance: DIETARY SUPPLEMENT
     Indication: Sexual dysfunction
  7. CLIMARA [Suspect]
     Active Substance: ESTRADIOL
     Indication: Atrophic vulvovaginitis
     Dosage: UNK
     Dates: start: 202112
  8. CLIMARA [Suspect]
     Active Substance: ESTRADIOL
     Indication: Sexual dysfunction
  9. ESTRACE [Suspect]
     Active Substance: ESTRADIOL
     Indication: Atrophic vulvovaginitis
     Dosage: UNK
     Dates: start: 2016, end: 2016
  10. ESTRACE [Suspect]
     Active Substance: ESTRADIOL
     Indication: Sexual dysfunction
  11. INTRAROSA [Suspect]
     Active Substance: PRASTERONE
     Indication: Atrophic vulvovaginitis
     Dosage: UNK
     Dates: start: 2020, end: 2020
  12. INTRAROSA [Suspect]
     Active Substance: PRASTERONE
     Indication: Sexual dysfunction

REACTIONS (4)
  - Endometritis [Unknown]
  - Wrong technique in product usage process [Unknown]
  - Vaginal haemorrhage [Recovered/Resolved]
  - Breast tenderness [Unknown]
